FAERS Safety Report 5840725-4 (Version None)
Quarter: 2008Q3

REPORT INFORMATION
  Report Type: 
  Country: None (occurrence: None)
  Receive Date: 20080811
  Receipt Date: 20080805
  Transmission Date: 20090109
  Serious: Yes (Other)
  Sender: FDA-Public Use
  Company Number: CA-ASTRAZENECA-2008AC02120

PATIENT
  Age: 54 Year
  Sex: Female

DRUGS (8)
  1. QUETIAPINE FUMARATE [Suspect]
     Indication: SCHIZOPHRENIA
     Dosage: TAKEN FOR SEVEN YEARS AT ONSET OF DYSTONIA, DOSE INCREASED OCCASIONALLY BY 100-200MG/DAY
     Route: 048
  2. QUETIAPINE FUMARATE [Suspect]
     Dosage: DOSE REDUCED DUE TO DYSTONIA
     Route: 048
  3. DIAZEPAM [Suspect]
     Indication: AKATHISIA
  4. PHENYTOIN [Suspect]
  5. SERTRALINE [Suspect]
  6. CLONAZEPAM [Suspect]
     Indication: AKATHISIA
  7. CLONAZEPAM [Suspect]
     Indication: SOMNAMBULISM
  8. LOCAL ANAESTHETIC [Concomitant]
     Indication: TOOTH REPAIR

REACTIONS (4)
  - AKATHISIA [None]
  - DYSTONIA [None]
  - HYPOTENSION [None]
  - SOMNAMBULISM [None]
